FAERS Safety Report 11737612 (Version 1)
Quarter: 2015Q4

REPORT INFORMATION
  Report Type: Spontaneous
  Country: CA (occurrence: CA)
  Receive Date: 20151113
  Receipt Date: 20151113
  Transmission Date: 20160304
  Serious: Yes (Other)
  Sender: FDA-Public Use
  Company Number: CA-JNJFOC-20151109504

PATIENT
  Age: 49 Year
  Sex: Female

DRUGS (1)
  1. TRI-CYCLEN [Suspect]
     Active Substance: ETHINYL ESTRADIOL\NORGESTIMATE
     Indication: MENSTRUAL CYCLE MANAGEMENT
     Dosage: 28 DAY.
     Route: 048

REACTIONS (7)
  - Feeling hot [Unknown]
  - Muscle spasms [Unknown]
  - Gait disturbance [Unknown]
  - Off label use [Unknown]
  - Localised oedema [Unknown]
  - Pain in extremity [Unknown]
  - Product use issue [Unknown]
